FAERS Safety Report 9248679 (Version 1)
Quarter: 2013Q2

REPORT INFORMATION
  Report Type: Spontaneous
  Country: US (occurrence: None)
  Receive Date: 20130419
  Receipt Date: 20130419
  Transmission Date: 20140414
  Serious: Yes (Hospitalization)
  Sender: FDA-Public Use
  Company Number: None

PATIENT
  Age: 77 Year
  Sex: Male
  Weight: 106 kg

DRUGS (2)
  1. FUROSEMIDE [Suspect]
     Indication: HYPERTENSION
     Route: 048
     Dates: start: 20070920, end: 20130408
  2. VALSARTAN [Suspect]
     Indication: HYPERTENSION
     Dosage: AM
     Route: 048
     Dates: start: 20060324, end: 20130408

REACTIONS (2)
  - Orthostatic hypotension [None]
  - Syncope [None]
